FAERS Safety Report 14123337 (Version 2)
Quarter: 2018Q1

REPORT INFORMATION
  Report Type: Spontaneous
  Country: US (occurrence: US)
  Receive Date: 20171025
  Receipt Date: 20180105
  Transmission Date: 20180508
  Serious: Yes (Hospitalization, Other)
  Sender: FDA-Public Use
  Company Number: US-PFIZER INC-2017459811

PATIENT
  Age: 68 Year

DRUGS (14)
  1. REVLIMID [Suspect]
     Active Substance: LENALIDOMIDE
     Dosage: 10 MG, CYCLIC (28 DAYS CONTINUOUS)
     Route: 048
     Dates: start: 20111107, end: 20120106
  2. REVLIMID [Suspect]
     Active Substance: LENALIDOMIDE
     Dosage: 25 MG, CYCLIC (SCHEDULE OF 21 DAYS ON, 7 DAYS OFF)
     Route: 048
     Dates: start: 20130305, end: 20130628
  3. DARZALEX [Suspect]
     Active Substance: DARATUMUMAB
     Indication: PLASMA CELL MYELOMA
     Dosage: 1500 MG, CYCLIC (EVERY 14 DAYS, 1 IN 14 DAY)
     Route: 042
     Dates: start: 20160218, end: 20160505
  4. REVLIMID [Suspect]
     Active Substance: LENALIDOMIDE
     Dosage: 15 MG, CYCLIC (28 DAYS CONTINUOUS)
     Route: 048
     Dates: start: 20121115, end: 20130207
  5. REVLIMID [Suspect]
     Active Substance: LENALIDOMIDE
     Dosage: 5 MG, CYCLIC (ONE TABLET THREE TIMES WEEKLY)
     Route: 048
     Dates: start: 20150515, end: 20150624
  6. REVLIMID [Suspect]
     Active Substance: LENALIDOMIDE
     Dosage: 5 MG, CYCLIC (3 IN 1 WEEK, THREE TIMES WEEKLY)
     Route: 048
     Dates: start: 20160515, end: 20160624
  7. SOLU-MEDROL [Suspect]
     Active Substance: METHYLPREDNISOLONE SODIUM SUCCINATE
     Indication: PLASMA CELL MYELOMA
     Dosage: 60 MG, CYCLIC (EVERY 14 DAYS/1 IN 14 DAY)
     Route: 042
     Dates: start: 20160421, end: 20160505
  8. REVLIMID [Suspect]
     Active Substance: LENALIDOMIDE
     Dosage: 15 MG, CYCLIC (SCHEDULE OF 5DAYS ON/2 DAYS OFF FOR 3 WEEKS)
     Route: 048
     Dates: start: 20120117, end: 20120426
  9. REVLIMID [Suspect]
     Active Substance: LENALIDOMIDE
     Dosage: 25 MG, CYCLIC (21 DAYS ON, 7 DAYS OFF)
     Route: 048
     Dates: start: 20170615
  10. REVLIMID [Suspect]
     Active Substance: LENALIDOMIDE
     Dosage: 25 MG, UNK
     Route: 048
     Dates: start: 20170406
  11. REVLIMID [Suspect]
     Active Substance: LENALIDOMIDE
     Dosage: UNK
     Dates: start: 20110305, end: 20130628
  12. REVLIMID [Suspect]
     Active Substance: LENALIDOMIDE
     Indication: PLASMA CELL MYELOMA
     Dosage: 25 MG, CYCLIC (SCHEDULE 21 DAYS ON, 7 DAYS OFF)
     Route: 048
     Dates: start: 20101209, end: 20110622
  13. REVLIMID [Suspect]
     Active Substance: LENALIDOMIDE
     Dosage: 25 MG, CYCLIC (21 DAYS ON, 7 DAYS OFF)
     Route: 048
     Dates: start: 20170406, end: 20170601
  14. DEXAMETHASONE. [Suspect]
     Active Substance: DEXAMETHASONE
     Indication: PLASMA CELL MYELOMA
     Dosage: 16 MG, UNK (16 MG ON DAY BEFORE TREATMENT, DAY OF AND 3 DAYS AFTER TREATMENT)
     Route: 048
     Dates: start: 20160505, end: 20160514

REACTIONS (4)
  - Anaemia [Recovered/Resolved]
  - Muscular weakness [Unknown]
  - Fall [Unknown]
  - Back pain [Recovered/Resolved]

NARRATIVE: CASE EVENT DATE: 20160515
